FAERS Safety Report 6904551-7 (Version None)
Quarter: 2010Q3

REPORT INFORMATION
  Report Type: 
  Country: None (occurrence: None)
  Receive Date: 20100804
  Receipt Date: 20090616
  Transmission Date: 20110219
  Serious: No
  Sender: FDA-Public Use
  Company Number: US-PFIZER INC-2009196107

PATIENT
  Sex: Female

DRUGS (2)
  1. LYRICA [Suspect]
     Indication: FIBROMYALGIA
     Dosage: UNK
     Dates: start: 20081201
  2. ADVIL LIQUI-GELS [Concomitant]
     Dosage: UNK

REACTIONS (3)
  - FLUID RETENTION [None]
  - HUNGER [None]
  - WEIGHT INCREASED [None]
